FAERS Safety Report 25436967 (Version 1)
Quarter: 2025Q2

REPORT INFORMATION
  Report Type: Report from Study
  Country: US (occurrence: US)
  Receive Date: 20250615
  Receipt Date: 20250615
  Transmission Date: 20250717
  Serious: Yes (Hospitalization, Other)
  Sender: ABBVIE
  Company Number: US-ABBVIE-6319044

PATIENT
  Age: 80 Year
  Sex: Female
  Weight: 61.2 kg

DRUGS (8)
  1. CREON [Suspect]
     Active Substance: PANCRELIPASE AMYLASE\PANCRELIPASE LIPASE\PANCRELIPASE PROTEASE
     Indication: Pancreaticoduodenectomy
     Route: 048
     Dates: start: 201607
  2. VITAMIN D2 [Concomitant]
     Active Substance: ERGOCALCIFEROL
     Indication: Product used for unknown indication
     Dosage: 125 MILLIGRAM
  3. PANTOPRAZOLE [Concomitant]
     Active Substance: PANTOPRAZOLE
     Indication: Gastrointestinal disorder
  4. HUMALOG [Concomitant]
     Active Substance: INSULIN LISPRO
     Indication: Blood glucose
  5. ROSUVASTATIN [Concomitant]
     Active Substance: ROSUVASTATIN
     Indication: Product used for unknown indication
  6. GLIMEPIRIDE [Concomitant]
     Active Substance: GLIMEPIRIDE
     Indication: Diabetes mellitus
  7. FUROSEMIDE [Concomitant]
     Active Substance: FUROSEMIDE
     Indication: Diuretic therapy
     Dosage: 20 MILLIGRAM
  8. GEMTESA [Concomitant]
     Active Substance: VIBEGRON
     Indication: Bladder disorder

REACTIONS (21)
  - Follicular lymphoma [Recovered/Resolved]
  - Contusion [Recovering/Resolving]
  - Myalgia [Recovering/Resolving]
  - Neuropathy peripheral [Recovering/Resolving]
  - Night sweats [Not Recovered/Not Resolved]
  - Gait inability [Recovering/Resolving]
  - Paraesthesia [Recovering/Resolving]
  - Fall [Recovered/Resolved]
  - Haemorrhage [Recovered/Resolved]
  - Blood glucose decreased [Unknown]
  - Blood iron decreased [Recovered/Resolved]
  - Fungal infection [Recovering/Resolving]
  - Chest pain [Recovering/Resolving]
  - Fungal foot infection [Recovered/Resolved]
  - Back pain [Recovering/Resolving]
  - Weight decreased [Not Recovered/Not Resolved]
  - Hypotonia [Recovering/Resolving]
  - Pollakiuria [Recovering/Resolving]
  - Upper limb fracture [Recovering/Resolving]
  - Mobility decreased [Recovering/Resolving]
  - Fibromyalgia [Not Recovered/Not Resolved]

NARRATIVE: CASE EVENT DATE: 20230101
